FAERS Safety Report 6267338-7 (Version None)
Quarter: 2009Q3

REPORT INFORMATION
  Report Type: 
  Country: None (occurrence: None)
  Receive Date: 20090714
  Receipt Date: 20090706
  Transmission Date: 20100115
  Serious: Yes (Hospitalization)
  Sender: FDA-Public Use
  Company Number: A0795485A

PATIENT
  Age: 58 Year
  Sex: Female

DRUGS (3)
  1. REQUIP XL [Suspect]
     Indication: PARKINSON'S DISEASE
     Dosage: 24MG PER DAY
     Route: 048
     Dates: start: 20090615
  2. REQUIP [Concomitant]
     Indication: PARKINSON'S DISEASE
     Dosage: 8MG THREE TIMES PER DAY
     Route: 048
     Dates: start: 20090511, end: 20090608
  3. EFFEXOR [Concomitant]

REACTIONS (3)
  - ABDOMINAL DISCOMFORT [None]
  - GASTRITIS [None]
  - VOMITING [None]
